FAERS Safety Report 8389312-7 (Version None)
Quarter: 2012Q2

REPORT INFORMATION
  Report Type: 
  Country: None (occurrence: None)
  Receive Date: 20120528
  Receipt Date: 20120522
  Transmission Date: 20120825
  Serious: No
  Sender: FDA-Public Use
  Company Number: US-BAYER-2012-051551

PATIENT
  Age: 81 Year
  Sex: Female
  Weight: 84 kg

DRUGS (1)
  1. NAPROXEN SODIUM [Suspect]
     Route: 048

REACTIONS (7)
  - CHILLS [None]
  - DYSPEPSIA [None]
  - FEELING ABNORMAL [None]
  - NAUSEA [None]
  - THROAT IRRITATION [None]
  - DIARRHOEA [None]
  - BLOOD PRESSURE INCREASED [None]
